FAERS Safety Report 8669327 (Version 5)
Quarter: 2013Q4

REPORT INFORMATION
  Report Type: Report from Study
  Country: BR (occurrence: BR)
  Receive Date: 20120717
  Receipt Date: 20131122
  Transmission Date: 20140711
  Serious: Yes (Hospitalization)
  Sender: FDA-Public Use
  Company Number: BR-ROCHE-1087445

PATIENT
  Sex: Female
  Weight: 60 kg

DRUGS (5)
  1. TOCILIZUMAB [Suspect]
     Indication: RHEUMATOID ARTHRITIS
     Route: 042
     Dates: start: 20100707, end: 20120510
  2. MABTHERA [Suspect]
     Indication: RHEUMATOID ARTHRITIS
     Dosage: ON 28/MAY/2013, SEP/2013 SHE RECEIVED LAST INFUSION OF RITUXIMAB.
     Route: 042
     Dates: start: 20120621, end: 20120705
  3. PREDNISONE [Concomitant]
     Route: 065
  4. METHOTREXATE [Concomitant]
  5. METICORTEN [Concomitant]

REACTIONS (8)
  - Eye disorder [Unknown]
  - Back pain [Recovered/Resolved]
  - Drug ineffective [Unknown]
  - Back pain [Not Recovered/Not Resolved]
  - Joint swelling [Not Recovered/Not Resolved]
  - Local swelling [Not Recovered/Not Resolved]
  - Transaminases abnormal [Recovering/Resolving]
  - Rheumatoid arthritis [Recovered/Resolved]
